FAERS Safety Report 7979049-8 (Version None)
Quarter: 2011Q4

REPORT INFORMATION
  Report Type: 
  Country: None (occurrence: None)
  Receive Date: 20111214
  Receipt Date: 20111208
  Transmission Date: 20120403
  Serious: No
  Sender: FDA-Public Use
  Company Number: US-PFIZER INC-2011300250

PATIENT
  Sex: Male

DRUGS (5)
  1. NARDIL [Suspect]
     Indication: DEPRESSION
     Dosage: 15 MG, 2X/DAY
     Route: 048
     Dates: start: 20110501, end: 20110101
  2. NARDIL [Suspect]
     Dosage: 75 MG, UNK
     Route: 048
     Dates: start: 20110101, end: 20110801
  3. NARDIL [Suspect]
     Dosage: 30 MG, UNK
     Route: 048
     Dates: start: 20110101, end: 20110101
  4. NARDIL [Suspect]
     Dosage: 45 MG, UNK
     Route: 048
     Dates: start: 20110101, end: 20110101
  5. NARDIL [Suspect]
     Dosage: 60 MG, UNK
     Route: 048
     Dates: start: 20110101, end: 20110101

REACTIONS (1)
  - OEDEMA PERIPHERAL [None]
